FAERS Safety Report 4387280-6 (Version None)
Quarter: 2004Q2

REPORT INFORMATION
  Report Type: 
  Country: None (occurrence: None)
  Receive Date: 20040630
  Receipt Date: 20040405
  Transmission Date: 20050107
  Serious: No
  Sender: FDA-Public Use
  Company Number: US-GLAXOSMITHKLINE-A0505938A

PATIENT
  Age: 5 Year
  Sex: Male

DRUGS (3)
  1. ADVAIR HFA [Suspect]
     Indication: ASTHMA
     Dosage: 1PUFF TWICE PER DAY
     Route: 055
  2. FLOVENT [Suspect]
     Indication: ASTHMA
     Route: 055
  3. NO CONCURRENT MEDICATION [Concomitant]

REACTIONS (3)
  - HOT FLUSH [None]
  - INCREASED APPETITE [None]
  - IRRITABILITY [None]
